FAERS Safety Report 10585161 (Version 1)
Quarter: 2014Q4

REPORT INFORMATION
  Report Type: Spontaneous
  Country: MX (occurrence: None)
  Receive Date: 20141113
  Receipt Date: 20141113
  Transmission Date: 20150529
  Serious: Yes (Other)
  Sender: FDA-Public Use
  Company Number: VAL_03585_2014

PATIENT
  Age: 79 Year
  Sex: Female

DRUGS (7)
  1. THOREVA [Concomitant]
  2. PHARMATON /00124801/ [Concomitant]
  3. DIURETICS (DIURETICS) [Suspect]
     Active Substance: UNSPECIFIED INGREDIENT
     Indication: PRODUCT USED FOR UNKNOWN INDICATION
     Dosage: DF?
  4. LOPRESSOR [Suspect]
     Active Substance: METOPROLOL TARTRATE
     Indication: BLOOD PRESSURE MANAGEMENT
     Route: 048
  5. DIOVAN [Suspect]
     Active Substance: VALSARTAN
     Indication: PRODUCT USED FOR UNKNOWN INDICATION
     Dosage: 1 DF AT NIGHT?
     Dates: start: 201409
  6. ENSURE /07499801/ [Concomitant]
  7. CO-DIOVAN (CO-DIOVAN) (NOT SPECIFIED) [Suspect]
     Active Substance: HYDROCHLOROTHIAZIDE\VALSARTAN
     Indication: PRODUCT USED FOR UNKNOWN INDICATION
     Dosage: 1 DF QD IN MORNING?
     Dates: start: 201407

REACTIONS (5)
  - Intentional product misuse [None]
  - General physical health deterioration [None]
  - Drug ineffective [None]
  - Blood pressure increased [None]
  - Wrong technique in drug usage process [None]

NARRATIVE: CASE EVENT DATE: 201409
